FAERS Safety Report 21686086 (Version 1)
Quarter: 2022Q4

REPORT INFORMATION
  Report Type: Report from Study
  Country: NL (occurrence: None)
  Receive Date: 20221206
  Receipt Date: 20221206
  Transmission Date: 20230112
  Serious: Yes (Hospitalization)
  Sender: FDA-Public Use
  Company Number: NL-ROCHE-3065694

PATIENT
  Age: 68 Year
  Sex: Male

DRUGS (9)
  1. VENETOCLAX [Suspect]
     Active Substance: VENETOCLAX
     Indication: Chronic lymphocytic leukaemia
     Dosage: DATE OF LAST DOES: 28/MAR/2022 (20 MG)
     Route: 048
     Dates: start: 20220322
  2. VENETOCLAX [Suspect]
     Active Substance: VENETOCLAX
     Dosage: ON 05/SEP/2022, HE RECEIVED MOST RECENT DOSE (400 MG) OF VENETOCLAX.
     Route: 048
     Dates: start: 20220419
  3. OBINUTUZUMAB [Suspect]
     Active Substance: OBINUTUZUMAB
     Indication: Chronic lymphocytic leukaemia
     Dosage: DATE OF LAST DOSE: 15/MAR/2022 (1000 MG)
     Route: 042
     Dates: start: 20220228
  4. OBINUTUZUMAB [Suspect]
     Active Substance: OBINUTUZUMAB
     Dosage: ON 23/AUG/2022, HE RECEIVED MOST RECENT DOSE OF OBINUTUZUMAB PRIOR TO ADVERSE EVENT.
     Route: 042
     Dates: start: 20220322
  5. LEVOTHYROXINE [Concomitant]
     Active Substance: LEVOTHYROXINE
  6. TESTOSTERONE [Concomitant]
     Active Substance: TESTOSTERONE
  7. APIXABAN [Concomitant]
     Active Substance: APIXABAN
  8. METOPROLOL [Concomitant]
     Active Substance: METOPROLOL
  9. ALFUZOSIN HYDROCHLORIDE [Concomitant]
     Active Substance: ALFUZOSIN HYDROCHLORIDE

REACTIONS (2)
  - Hyperglycaemia [Not Recovered/Not Resolved]
  - Campylobacter gastroenteritis [Recovered/Resolved]

NARRATIVE: CASE EVENT DATE: 20220328
